FAERS Safety Report 8900134 (Version 1)
Quarter: 2012Q4

REPORT INFORMATION
  Report Type: 
  Country: NZ (occurrence: NZ)
  Receive Date: 20121109
  Receipt Date: 20121109
  Transmission Date: 20130627
  Serious: Yes (Death)
  Sender: FDA-Public Use
  Company Number: CHPA2012NZ023234

PATIENT

DRUGS (1)
  1. LAMISIL [Suspect]
     Dosage: Maternal dose: Unk, BID
     Route: 064
     Dates: start: 20120217, end: 20120223

REACTIONS (3)
  - Abortion spontaneous [Fatal]
  - Foetal growth restriction [Fatal]
  - Foetal exposure during pregnancy [Unknown]
